FAERS Safety Report 10004772 (Version 1)
Quarter: 2014Q1

REPORT INFORMATION
  Report Type: Spontaneous
  Country: US (occurrence: US)
  Receive Date: 20140312
  Receipt Date: 20140312
  Transmission Date: 20141002
  Serious: Yes (Other)
  Sender: FDA-Public Use
  Company Number: US-PFIZER INC-2014070571

PATIENT
  Sex: Female

DRUGS (1)
  1. CHANTIX [Suspect]
     Dosage: UNK

REACTIONS (7)
  - Suicidal ideation [Unknown]
  - Suicidal behaviour [Unknown]
  - Abnormal behaviour [Unknown]
  - Hostility [Unknown]
  - Agitation [Unknown]
  - Depressed mood [Unknown]
  - Initial insomnia [Unknown]
